FAERS Safety Report 7183171-6 (Version None)
Quarter: 2010Q4

REPORT INFORMATION
  Report Type: 
  Country: None (occurrence: None)
  Receive Date: 20101222
  Receipt Date: 20101213
  Transmission Date: 20110411
  Serious: Yes (Hospitalization)
  Sender: FDA-Public Use
  Company Number: US-JNJFOC-20101104625

PATIENT
  Sex: Female
  Weight: 58.06 kg

DRUGS (2)
  1. REMICADE [Suspect]
     Indication: RHEUMATOID ARTHRITIS
     Route: 042
  2. METHOTREXATE [Concomitant]
     Indication: ARTHRITIS
     Route: 030

REACTIONS (4)
  - HELICOBACTER GASTRITIS [None]
  - HYPERTENSION [None]
  - PAIN [None]
  - PANCREATIC DUCT OBSTRUCTION [None]
